FAERS Safety Report 12422742 (Version 1)
Quarter: 2016Q2

REPORT INFORMATION
  Report Type: Spontaneous
  Country: DE (occurrence: DE)
  Receive Date: 20160601
  Receipt Date: 20160601
  Transmission Date: 20160815
  Serious: Yes (Other)
  Sender: FDA-Public Use
  Company Number: DE-009507513-1605DEU013901

PATIENT
  Age: 72 Year
  Sex: Female
  Weight: 65 kg

DRUGS (5)
  1. MIRTAZAPINE. [Suspect]
     Active Substance: MIRTAZAPINE
     Indication: ANXIETY DISORDER
  2. MIRTAZAPINE. [Suspect]
     Active Substance: MIRTAZAPINE
     Indication: DEPRESSION
     Dosage: DAILY DOSE: 30 MILIGRAMS (MG), EVERY DAYS; CUMULATIVE DOSE NUMBER: 6420 MG; 30 MG, 1 IN 1 DAY
     Route: 048
     Dates: start: 20150801, end: 20160321
  3. MADOPAR [Concomitant]
     Active Substance: BENSERAZIDE HYDROCHLORIDE\LEVODOPA
     Indication: PARKINSON^S DISEASE
     Dosage: 62.5 MG, UNK
     Route: 048
     Dates: start: 20151124, end: 20160319
  4. ASPIRIN. [Concomitant]
     Active Substance: ASPIRIN
     Indication: MIGRAINE PROPHYLAXIS
     Dosage: 81 MILIGRAMS EVERY DAYS
     Route: 048
     Dates: start: 20140907
  5. VIGANTOLETTEN [Concomitant]
     Active Substance: CHOLECALCIFEROL
     Indication: OSTEOPOROSIS PROPHYLAXIS
     Dosage: 1000 INTERNATIONAL UNITS, NUMBER OF SEPARATE DOSAGE 1, NUMBER OF UNITS IN THE IN
     Route: 048

REACTIONS (3)
  - Jaundice [Recovered/Resolved]
  - Nausea [Recovered/Resolved]
  - Drug-induced liver injury [Recovered/Resolved]

NARRATIVE: CASE EVENT DATE: 201603
